FAERS Safety Report 8915137 (Version 1)
Quarter: 2012Q4

REPORT INFORMATION
  Report Type: 
  Country: GB (occurrence: GB)
  Receive Date: 20121119
  Receipt Date: 20121119
  Transmission Date: 20130627
  Serious: Yes (Other)
  Sender: FDA-Public Use
  Company Number: GB-ASTRAZENECA-2012SE85307

PATIENT
  Age: 18262 Day
  Sex: Male

DRUGS (2)
  1. LIDOCAINE HYDROCHLORIDE [Suspect]
     Indication: BIOPSY
     Route: 065
     Dates: start: 20120808
  2. LIDOCAINE HYDROCHLORIDE [Suspect]
     Indication: ASPIRATION BONE MARROW
     Route: 065
     Dates: start: 20120808

REACTIONS (4)
  - Muscle spasms [Recovered/Resolved]
  - Catatonia [Recovered/Resolved]
  - Vision blurred [Recovered/Resolved]
  - Dysarthria [Recovered/Resolved]
